FAERS Safety Report 25892677 (Version 1)
Quarter: 2025Q4

REPORT INFORMATION
  Report Type: Spontaneous
  Country: CN (occurrence: CN)
  Receive Date: 20251007
  Receipt Date: 20251007
  Transmission Date: 20260118
  Serious: Yes (Hospitalization)
  Sender: PFIZER
  Company Number: CN-PFIZER INC-PV202500118185

PATIENT
  Age: 72 Year
  Sex: Female
  Weight: 40.5 kg

DRUGS (2)
  1. PACLITAXEL [Suspect]
     Active Substance: PACLITAXEL
     Indication: Endometrial cancer
     Dosage: 210 MG, 1X/DAY
     Route: 041
     Dates: start: 20250813, end: 20250813
  2. CARBOPLATIN [Suspect]
     Active Substance: CARBOPLATIN
     Indication: Endometrial cancer
     Dosage: 500 MG, 1X/DAY
     Route: 041
     Dates: start: 20250813, end: 20250813

REACTIONS (9)
  - Nausea [Recovering/Resolving]
  - Gastrointestinal disorder [Recovering/Resolving]
  - Asthenia [Recovering/Resolving]
  - Pharyngeal swelling [Recovering/Resolving]
  - Oropharyngeal pain [Recovering/Resolving]
  - Mental disorder [Recovering/Resolving]
  - Decreased appetite [Recovering/Resolving]
  - Poor quality sleep [Recovering/Resolving]
  - Off label use [Unknown]

NARRATIVE: CASE EVENT DATE: 20250926
